FAERS Safety Report 16134370 (Version 1)
Quarter: 2019Q1

REPORT INFORMATION
  Report Type: Spontaneous
  Country: IT (occurrence: IT)
  Receive Date: 20190329
  Receipt Date: 20190329
  Transmission Date: 20190418
  Serious: Yes (Hospitalization)
  Sender: FDA-Public Use
  Company Number: IT-BAYER-2019-060798

PATIENT
  Age: 83 Year
  Sex: Male

DRUGS (12)
  1. LASIX [Concomitant]
     Active Substance: FUROSEMIDE
     Dosage: 25 MG, UNK
     Route: 048
  2. CORDARONE [Concomitant]
     Active Substance: AMIODARONE HYDROCHLORIDE
     Dosage: 200 MG, UNK
     Route: 048
  3. NOVONORM [Concomitant]
     Active Substance: REPAGLINIDE
     Dosage: .5 MG, UNK
  4. CONGESCOR [Concomitant]
     Active Substance: BISOPROLOL
     Dosage: 5 MG, UNK
     Route: 048
  5. PLAVIX [Suspect]
     Active Substance: CLOPIDOGREL BISULFATE
     Indication: THROMBOSIS PROPHYLAXIS
     Dosage: 75 MG, QD
     Route: 048
     Dates: start: 20180101, end: 20180711
  6. TRIATEC [RAMIPRIL] [Concomitant]
     Active Substance: RAMIPRIL
     Dosage: 2.5 MG, UNK
     Route: 048
  7. CARDIOASPIRIN 100 MG [Suspect]
     Active Substance: ASPIRIN
     Indication: THROMBOSIS PROPHYLAXIS
     Dosage: 100 MG, QD
     Route: 048
     Dates: start: 20180101, end: 20180323
  8. GALVUS [Concomitant]
     Active Substance: VILDAGLIPTIN
     Dosage: 50 MG, UNK
     Route: 048
  9. XARELTO [Suspect]
     Active Substance: RIVAROXABAN
     Indication: THROMBOSIS PROPHYLAXIS
     Dosage: 15 MG, QD
     Route: 048
     Dates: start: 20180101, end: 20180323
  10. TORVAST [Concomitant]
     Active Substance: ATORVASTATIN
     Dosage: 40 MG, UNK
     Route: 048
  11. SPIRIVA [Concomitant]
     Active Substance: TIOTROPIUM BROMIDE MONOHYDRATE
     Dosage: 18 ?G, UNK
     Route: 055
  12. LANSOX [Concomitant]
     Active Substance: LANSOPRAZOLE
     Dosage: 15 MG, UNK

REACTIONS (1)
  - Cerebral haemorrhage [Recovered/Resolved]

NARRATIVE: CASE EVENT DATE: 20180323
